FAERS Safety Report 20308020 (Version 6)
Quarter: 2022Q4

REPORT INFORMATION
  Report Type: Report from Study
  Country: US (occurrence: US)
  Receive Date: 20220107
  Receipt Date: 20221125
  Transmission Date: 20230113
  Serious: Yes (Other)
  Sender: FDA-Public Use
  Company Number: US-NOVARTISTESTPH-NVSC2022US002082

PATIENT
  Age: 50 Year
  Sex: Female

DRUGS (2)
  1. KESIMPTA [Suspect]
     Active Substance: OFATUMUMAB
     Indication: Multiple sclerosis
     Dosage: 20 MG (BENEATH THE SKIN,USUALLY VIA INJECTION)
     Route: 058
     Dates: start: 20211203
  2. KESIMPTA [Suspect]
     Active Substance: OFATUMUMAB
     Dosage: UNK
     Route: 065
     Dates: start: 20221119, end: 20221120

REACTIONS (10)
  - Cellulitis [Unknown]
  - Abscess [Unknown]
  - Influenza like illness [Unknown]
  - Pain [Unknown]
  - Oropharyngeal pain [Unknown]
  - Night sweats [Unknown]
  - Fatigue [Unknown]
  - Illness [Recovering/Resolving]
  - Headache [Recovered/Resolved]
  - Chills [Recovered/Resolved]

NARRATIVE: CASE EVENT DATE: 20211203
